FAERS Safety Report 10092413 (Version 1)
Quarter: 2014Q2

REPORT INFORMATION
  Report Type: Spontaneous
  Country: US (occurrence: US)
  Receive Date: 20140421
  Receipt Date: 20140421
  Transmission Date: 20141212
  Serious: No
  Sender: FDA-Public Use
  Company Number: US-SANOFI-AVENTIS-2013SA050112

PATIENT
  Age: 75 Year
  Sex: Female

DRUGS (4)
  1. ALLEGRA [Suspect]
     Indication: URTICARIA
     Route: 065
     Dates: start: 201304
  2. ALLEGRA ALLERGY, 12 HR [Suspect]
     Indication: URTICARIA
     Dosage: TREATMENT START DATE: 2 DAYS AGO
     Route: 065
     Dates: start: 201305
  3. ATARAX [Concomitant]
     Route: 065
  4. CORTICOSTEROIDS [Concomitant]
     Route: 065

REACTIONS (4)
  - Chromaturia [Not Recovered/Not Resolved]
  - Mucous membrane disorder [Unknown]
  - Fatigue [Not Recovered/Not Resolved]
  - Drug ineffective [Unknown]
